FAERS Safety Report 4873927-4 (Version None)
Quarter: 2006Q1

REPORT INFORMATION
  Report Type: 
  Country: None (occurrence: None)
  Receive Date: 20060104
  Receipt Date: 20051221
  Transmission Date: 20060701
  Serious: Yes (Hospitalization, Other)
  Sender: FDA-Public Use
  Company Number: 2005154745

PATIENT
  Age: 60 Year
  Sex: Male
  Weight: 86.1834 kg

DRUGS (2)
  1. DILANTIN [Suspect]
     Indication: CONVULSION
     Dosage: (2 IN 1 D), ORAL
     Route: 048
     Dates: start: 19980101, end: 19990101
  2. CARDIAC THERAPY (CARDIAC THERAPY) [Concomitant]

REACTIONS (9)
  - AMNESIA [None]
  - BLINDNESS UNILATERAL [None]
  - CATARACT [None]
  - CONVULSION [None]
  - DYSARTHRIA [None]
  - FALL [None]
  - GLAUCOMA [None]
  - OVERDOSE [None]
  - WEIGHT INCREASED [None]
